FAERS Safety Report 14012108 (Version 1)
Quarter: 2017Q3

REPORT INFORMATION
  Report Type: Spontaneous
  Country: US (occurrence: US)
  Receive Date: 20170926
  Receipt Date: 20170926
  Transmission Date: 20171128
  Serious: Yes (Other)
  Sender: FDA-Public Use
  Company Number: US-UPSHER-SMITH LABORATORIES, INC.-2017USL00209

PATIENT
  Age: 73 Year
  Sex: Male

DRUGS (1)
  1. PACERONE [Suspect]
     Active Substance: AMIODARONE HYDROCHLORIDE
     Indication: ATRIAL FIBRILLATION
     Dosage: UNK
     Dates: end: 201708

REACTIONS (8)
  - Bronchitis [Unknown]
  - Dyspnoea [Unknown]
  - Pulmonary mass [Unknown]
  - Vision blurred [Unknown]
  - Balance disorder [Unknown]
  - Red blood cell count decreased [Unknown]
  - Pharyngeal disorder [Unknown]
  - Gait disturbance [Unknown]

NARRATIVE: CASE EVENT DATE: 201709
